FAERS Safety Report 25189993 (Version 1)
Quarter: 2025Q2

REPORT INFORMATION
  Report Type: Spontaneous
  Country: US (occurrence: US)
  Receive Date: 20250411
  Receipt Date: 20250411
  Transmission Date: 20250717
  Serious: Yes (Other)
  Sender: DOMPE FARMACEUTICI
  Company Number: US-FARMAPROD-202504-1078

PATIENT
  Age: 66 Year
  Sex: Female

DRUGS (34)
  1. OXERVATE [Suspect]
     Active Substance: CENEGERMIN-BKBJ
     Indication: Neurotrophic keratopathy
     Route: 047
     Dates: start: 20250318
  2. CYCLOSPORINE [Concomitant]
     Active Substance: CYCLOSPORINE
  3. ALBUTEROL\IPRATROPIUM [Concomitant]
     Active Substance: ALBUTEROL\IPRATROPIUM
  4. FERROUS SULFATE [Concomitant]
     Active Substance: FERROUS SULFATE
  5. TIZANIDINE HYDROCHLORIDE [Concomitant]
     Active Substance: TIZANIDINE HYDROCHLORIDE
  6. GVOKE HYPOPEN 2-PACK [Concomitant]
  7. HYDROXYCHLOROQUINE SULFATE [Concomitant]
     Active Substance: HYDROXYCHLOROQUINE SULFATE
  8. TRESIBA FLEXTOUCH U-200 [Concomitant]
  9. DULOXETINE HYDROCHLORIDE [Concomitant]
     Active Substance: DULOXETINE HYDROCHLORIDE
  10. CLONIDINE HYDROCHLORIDE [Concomitant]
     Active Substance: CLONIDINE HYDROCHLORIDE
  11. GABAPENTIN [Concomitant]
     Active Substance: GABAPENTIN
  12. MIDODRINE HYDROCHLORIDE [Concomitant]
     Active Substance: MIDODRINE HYDROCHLORIDE
  13. CALCIUM CIT - VITAMIN D [Concomitant]
  14. DOXYCYCLINE HYDROCHLORIDE [Concomitant]
     Active Substance: DOXYCYCLINE HYDROCHLORIDE
  15. ALBUTEROL SULFATE [Concomitant]
     Active Substance: ALBUTEROL SULFATE
  16. LYUMJEV KWIKPEN [Concomitant]
     Active Substance: INSULIN LISPRO
  17. TRULICITY [Concomitant]
     Active Substance: DULAGLUTIDE
  18. LEVOTHYROXINE SODIUM [Concomitant]
     Active Substance: LEVOTHYROXINE SODIUM
  19. LOSARTAN POTASSIUM [Concomitant]
     Active Substance: LOSARTAN POTASSIUM
  20. INSULIN ASPART [Concomitant]
     Active Substance: INSULIN ASPART
  21. FLUTICASONE PROPIONATE [Concomitant]
     Active Substance: FLUTICASONE PROPIONATE
  22. BUDESONIDE-FORMOTEROL FUMARATE [Concomitant]
  23. CETIRIZINE HCL [Concomitant]
     Active Substance: CETIRIZINE HYDROCHLORIDE
  24. SYSTANE HYDRATION PF [Concomitant]
  25. METFORMIN HYDROCHLORIDE [Concomitant]
     Active Substance: METFORMIN HYDROCHLORIDE
  26. JARDIANCE [Concomitant]
     Active Substance: EMPAGLIFLOZIN
  27. MUPIROCIN [Concomitant]
     Active Substance: MUPIROCIN
  28. ACETAMINOPHEN\OXYCODONE HYDROCHLORIDE [Concomitant]
     Active Substance: ACETAMINOPHEN\OXYCODONE HYDROCHLORIDE
  29. BUPROPION [Concomitant]
     Active Substance: BUPROPION
  30. MOUNJARO [Concomitant]
     Active Substance: TIRZEPATIDE
  31. MONTELUKAST SODIUM [Concomitant]
     Active Substance: MONTELUKAST SODIUM
  32. EPIPEN [Concomitant]
     Active Substance: EPINEPHRINE
  33. TRAZODONE HCL [Concomitant]
     Active Substance: TRAZODONE HYDROCHLORIDE
  34. ATORVASTATIN [Concomitant]
     Active Substance: ATORVASTATIN

REACTIONS (3)
  - Limb operation [Unknown]
  - Eye pain [Unknown]
  - Device use issue [Unknown]

NARRATIVE: CASE EVENT DATE: 20250331
